FAERS Safety Report 25867578 (Version 1)
Quarter: 2025Q4

REPORT INFORMATION
  Report Type: Spontaneous
  Country: EU (occurrence: EU)
  Receive Date: 20251001
  Receipt Date: 20251001
  Transmission Date: 20260118
  Serious: Yes (Hospitalization, Other)
  Sender: CHEPLAPHARM
  Company Number: EU-ROCHE-2261436

PATIENT
  Age: 72 Year
  Sex: Female

DRUGS (3)
  1. CAPECITABINE [Suspect]
     Active Substance: CAPECITABINE
     Indication: Phaeochromocytoma
     Dates: start: 201508, end: 201801
  2. CAPECITABINE [Suspect]
     Active Substance: CAPECITABINE
     Indication: Phaeochromocytoma
     Dates: start: 201801, end: 2018
  3. LANREOTIDE [Concomitant]
     Active Substance: LANREOTIDE
     Indication: Phaeochromocytoma
     Dosage: FIRST ADMINISTRATION LASTED FOR 9 MONTHS
     Dates: start: 200906

REACTIONS (2)
  - Sinusitis aspergillus [Recovered/Resolved]
  - Off label use [Recovered/Resolved]

NARRATIVE: CASE EVENT DATE: 20150801
